FAERS Safety Report 4830917-5 (Version None)
Quarter: 2005Q4

REPORT INFORMATION
  Report Type: 
  Country: None (occurrence: None)
  Receive Date: 20051114
  Receipt Date: 20051103
  Transmission Date: 20060501
  Serious: Yes (Hospitalization)
  Sender: FDA-Public Use
  Company Number: 2005ADE/DICLO-012

PATIENT
  Age: 61 Year
  Sex: Male

DRUGS (6)
  1. DICLOFENAC SODIUM [Suspect]
     Indication: ANKYLOSING SPONDYLITIS
     Dosage: ORAL
     Route: 048
  2. ASPIRIN [Concomitant]
  3. SIMVASTATIN [Concomitant]
  4. RAMIPRIL [Concomitant]
  5. CYANOCOBALAMIN [Concomitant]
  6. METOPROLOL [Concomitant]

REACTIONS (4)
  - ASCITES [None]
  - FAECES DISCOLOURED [None]
  - GASTRIC ULCER [None]
  - GASTROINTESTINAL DISORDER [None]
